FAERS Safety Report 25071292 (Version 1)
Quarter: 2025Q1

REPORT INFORMATION
  Report Type: Spontaneous
  Country: AT (occurrence: AT)
  Receive Date: 20250312
  Receipt Date: 20250312
  Transmission Date: 20250408
  Serious: Yes (Death, Other)
  Sender: JAZZ
  Company Number: AT-JAZZ PHARMACEUTICALS-2025-AT-006327

PATIENT

DRUGS (4)
  1. CANNABIDIOL [Suspect]
     Active Substance: CANNABIDIOL
     Indication: Tuberous sclerosis complex
  2. LACOSAMIDE [Concomitant]
     Active Substance: LACOSAMIDE
     Indication: Tuberous sclerosis complex
  3. PERAMPANEL [Concomitant]
     Active Substance: PERAMPANEL
     Indication: Tuberous sclerosis complex
  4. EVEROLIMUS [Concomitant]
     Active Substance: EVEROLIMUS
     Indication: Tuberous sclerosis complex

REACTIONS (1)
  - Sudden unexplained death in epilepsy [Fatal]
